FAERS Safety Report 6379817-2 (Version None)
Quarter: 2009Q3

REPORT INFORMATION
  Report Type: 
  Country: None (occurrence: None)
  Receive Date: 20090924
  Receipt Date: 20090924
  Transmission Date: 20100115
  Serious: Yes (Hospitalization)
  Sender: FDA-Public Use
  Company Number: None

PATIENT
  Age: 71 Year
  Sex: Female
  Weight: 72.9 kg

DRUGS (8)
  1. DORIBAX [Suspect]
     Indication: PNEUMONIA ASPIRATION
     Dosage: DORIBAX 500 MG Q8 HOURS IV
     Route: 042
     Dates: start: 20090525, end: 20090601
  2. METHYLPHENIDATE HCL [Concomitant]
  3. METHADONE HYDROCHLORIDE [Concomitant]
  4. PAROXETINE HCL [Concomitant]
  5. PANTOPRAZOLE SODIUM [Concomitant]
  6. LORAZEPAM [Concomitant]
  7. LEVALBUTEROL HCL [Concomitant]
  8. FUROSEMIDE [Concomitant]

REACTIONS (2)
  - AGGRESSION [None]
  - REVERSIBLE POSTERIOR LEUKOENCEPHALOPATHY SYNDROME [None]
